FAERS Safety Report 9466683 (Version 2)
Quarter: 2013Q3

REPORT INFORMATION
  Report Type: Spontaneous
  Country: JP (occurrence: JP)
  Receive Date: 20130820
  Receipt Date: 20130905
  Transmission Date: 20140515
  Serious: Yes (Hospitalization, Other)
  Sender: FDA-Public Use
  Company Number: JP-WATSON-2013-14215

PATIENT
  Age: 84 Year
  Sex: Male
  Weight: 57 kg

DRUGS (13)
  1. TRANEXAMIC ACID (WATSON LABORATORIES) [Suspect]
     Indication: AORTIC VALVE REPLACEMENT
     Dosage: 3 G, SINGLE IN 100 ML SALINE
     Route: 042
  2. TRANEXAMIC ACID (WATSON LABORATORIES) [Suspect]
     Indication: CARDIOPULMONARY BYPASS
     Dosage: 5 MG, SINGLE IN 100 ML SALINE
     Route: 042
  3. IMIDAPRIL HYDROCHLORIDE [Concomitant]
     Indication: HYPERTENSION
     Dosage: 5 MG, UNK
     Route: 065
  4. NIFEDIPINE [Concomitant]
     Indication: HYPERTENSION
     Dosage: 20 MG, UNK
     Route: 065
  5. SPIRONOLACTONE [Concomitant]
     Indication: HYPERTENSION
     Dosage: 25 MG, UNK
     Route: 065
  6. PROPOFOL [Concomitant]
     Indication: ANAESTHESIA
     Dosage: 100 MG, UNK
     Route: 013
  7. PROPOFOL [Concomitant]
     Dosage: 3 ?G/ML, UNK
  8. FENTANYL [Concomitant]
     Indication: ANAESTHESIA
     Dosage: 50 ?G, UNK
     Route: 013
  9. FENTANYL [Concomitant]
     Dosage: 150 ?G, WHEN NEEDED
  10. ROCURONIUM [Concomitant]
     Indication: ENDOTRACHEAL INTUBATION
     Dosage: 40 MG, SINGLE
     Route: 013
  11. ROCURONIUM [Concomitant]
     Indication: MUSCLE RELAXANT THERAPY
  12. SEVOFLURANE [Concomitant]
     Indication: MAINTENANCE OF ANAESTHESIA
     Dosage: UNK
     Route: 065
  13. OXYGEN [Concomitant]
     Indication: MAINTENANCE OF ANAESTHESIA
     Dosage: 2 L/MIN
     Route: 065

REACTIONS (1)
  - Convulsion [Recovered/Resolved]
